FAERS Safety Report 5236433-3 (Version None)
Quarter: 2007Q1

REPORT INFORMATION
  Report Type: 
  Country: None (occurrence: None)
  Receive Date: 20061208
  Receipt Date: 20060731
  Transmission Date: 20070707
  Serious: Yes (Other)
  Sender: FDA-Public Use
  Company Number: 2006UW15314

PATIENT
  Age: 56 Year
  Sex: Male
  Weight: 108.86 kg

DRUGS (7)
  1. CRESTOR [Suspect]
     Indication: BLOOD CHOLESTEROL INCREASED
     Dosage: 10 MG DAILY PO
     Route: 048
     Dates: start: 20060601
  2. INSULIN [Concomitant]
  3. GLUCOPHAGE [Concomitant]
  4. CATAPRES [Concomitant]
  5. FELDENE [Concomitant]
  6. BENICAR [Concomitant]
  7. HYDROCHLOROTHIAZIDE [Concomitant]

REACTIONS (2)
  - BACK PAIN [None]
  - BLOOD GLUCOSE DECREASED [None]
